FAERS Safety Report 4753144-9 (Version None)
Quarter: 2005Q3

REPORT INFORMATION
  Report Type: 
  Country: None (occurrence: None)
  Receive Date: 20050823
  Receipt Date: 20050808
  Transmission Date: 20060218
  Serious: Yes (Hospitalization, Other)
  Sender: FDA-Public Use
  Company Number: USA0508104933

PATIENT
  Age: 63 Year
  Sex: Female

DRUGS (3)
  1. FORTEO [Suspect]
     Indication: OSTEOGENESIS IMPERFECTA
     Dates: start: 20050601
  2. ASTHMA INHALERS [Concomitant]
  3. ASTHMA NEBULIZER [Concomitant]

REACTIONS (4)
  - ASTHMA [None]
  - BREATH SOUNDS ABNORMAL [None]
  - OEDEMA PERIPHERAL [None]
  - PHARMACEUTICAL PRODUCT COMPLAINT [None]
